FAERS Safety Report 5370547-2 (Version None)
Quarter: 2007Q2

REPORT INFORMATION
  Report Type: 
  Country: None (occurrence: None)
  Receive Date: 20070622
  Receipt Date: 20070612
  Transmission Date: 20071010
  Serious: Yes (Death)
  Sender: FDA-Public Use
  Company Number: 2007SP011753

PATIENT
  Age: 54 Year
  Sex: Female

DRUGS (34)
  1. NASONEX [Suspect]
     Indication: SINUSITIS
     Dosage: 50 MCG; BID; NAS
     Route: 045
  2. REMICADE [Suspect]
     Indication: RHEUMATOID ARTHRITIS
     Dosage: 400 MG
     Dates: end: 20070426
  3. ACTOS [Concomitant]
  4. PANTOPRAZOLE SODIUM [Concomitant]
  5. FLURAZEPAM [Concomitant]
  6. ACETAMINOPHEN [Concomitant]
  7. NOVO-DILTAZEM [Concomitant]
  8. METHOTREXAT [Concomitant]
  9. STATEX [Concomitant]
  10. FOLIC ACID [Concomitant]
  11. APO-FUROSEMIDE [Concomitant]
  12. ADVAIR DISKUS 100/50 [Concomitant]
  13. SPIRIVA [Concomitant]
  14. ACTONEL [Concomitant]
  15. LANTUS [Concomitant]
  16. GABAPENTIN [Concomitant]
  17. APO-HYDROXYQUINE [Concomitant]
  18. ARISTOCORT R [Concomitant]
  19. MUPIROCIN [Concomitant]
  20. APO-CYCLOBENZAPRINE [Concomitant]
  21. MELOXICAM [Concomitant]
  22. ESTRACE [Concomitant]
  23. CALCITE D [Concomitant]
  24. VASOTEC [Concomitant]
  25. ORACORT [Concomitant]
  26. SECARIS [Concomitant]
  27. FLUCONAZOLE [Concomitant]
  28. AMITRIPTYLINE HCL [Concomitant]
  29. MAXALT [Concomitant]
  30. LORAZEPAM [Concomitant]
  31. RATIO-SALBUTAMOL HFA [Concomitant]
  32. HYDROXYZINE [Concomitant]
  33. HUMALOG [Concomitant]
  34. DOCUSATE CALCIUM [Concomitant]

REACTIONS (1)
  - DEATH [None]
